FAERS Safety Report 17183269 (Version 1)
Quarter: 2019Q4

REPORT INFORMATION
  Report Type: Spontaneous
  Country: FR (occurrence: FR)
  Receive Date: 20191220
  Receipt Date: 20191220
  Transmission Date: 20200122
  Serious: Yes (Hospitalization)
  Sender: FDA-Public Use
  Company Number: NVSC2019FR070798

PATIENT
  Age: 5 Year
  Sex: Male
  Weight: 23 kg

DRUGS (5)
  1. HELICIDINE [Suspect]
     Active Substance: ESCARGOT
     Indication: COUGH
     Dosage: 1 DF, QD
     Route: 048
     Dates: start: 20190926, end: 20190930
  2. SOLUPRED [Concomitant]
     Indication: COUGH
     Dosage: 1 DF, QD
     Route: 065
     Dates: start: 20190926, end: 20190930
  3. DOLIPRANE [Concomitant]
     Active Substance: ACETAMINOPHEN
     Indication: PYREXIA
     Dosage: UNK, PRN (AS NECESSARY}
     Route: 065
     Dates: start: 20190926
  4. IBUPROFEN. [Suspect]
     Active Substance: IBUPROFEN
     Indication: PYREXIA
     Dosage: 1 DF, PRN (AS NECESSARY)
     Route: 048
     Dates: start: 20190926, end: 20190930
  5. AMOXICILLIN. [Suspect]
     Active Substance: AMOXICILLIN
     Indication: COUGH
     Dosage: 3 DF, QD
     Route: 048
     Dates: start: 20190926, end: 20190930

REACTIONS (2)
  - Stevens-Johnson syndrome [Recovered/Resolved]
  - Infection [Recovered/Resolved]

NARRATIVE: CASE EVENT DATE: 20190930
